FAERS Safety Report 10100739 (Version 4)
Quarter: 2014Q3

REPORT INFORMATION
  Report Type: Spontaneous
  Country: FI (occurrence: FI)
  Receive Date: 20140423
  Receipt Date: 20140722
  Transmission Date: 20150326
  Serious: Yes (Other)
  Sender: FDA-Public Use
  Company Number: CHPA2014FI005617

PATIENT
  Age: 62 Year
  Sex: Male

DRUGS (2)
  1. VITAMIN A [Concomitant]
     Active Substance: VITAMIN A
  2. OTRIVIN [Suspect]
     Active Substance: XYLOMETAZOLINE
     Indication: HYPERSENSITIVITY
     Dosage: 1 DF, QHS
     Dates: start: 201306, end: 201404

REACTIONS (7)
  - Oropharyngeal pain [Recovered/Resolved]
  - Odynophagia [Recovered/Resolved]
  - Off label use [Unknown]
  - Incorrect drug administration duration [Unknown]
  - Pharyngeal oedema [Recovering/Resolving]
  - Sensation of foreign body [Recovered/Resolved]
  - Throat irritation [Recovered/Resolved]

NARRATIVE: CASE EVENT DATE: 2013
